FAERS Safety Report 4330220-6 (Version None)
Quarter: 2004Q1

REPORT INFORMATION
  Report Type: 
  Country: None (occurrence: None)
  Receive Date: 20040329
  Receipt Date: 20040322
  Transmission Date: 20041129
  Serious: Yes (Hospitalization)
  Sender: FDA-Public Use
  Company Number: 2004204652US

PATIENT
  Age: 77 Year
  Sex: Male

DRUGS (4)
  1. BEXTRA [Suspect]
     Dosage: 20 MG, QD, UNK
     Route: 065
     Dates: start: 20040301
  2. ASPIRIN [Concomitant]
  3. PAXIL [Concomitant]
  4. MULTIVITAMIN [Concomitant]

REACTIONS (4)
  - CEREBROVASCULAR ACCIDENT [None]
  - CONFUSIONAL STATE [None]
  - RASH [None]
  - URINE SODIUM INCREASED [None]
